FAERS Safety Report 21907103 (Version 4)
Quarter: 2023Q1

REPORT INFORMATION
  Report Type: Spontaneous
  Country: US (occurrence: US)
  Receive Date: 20230125
  Receipt Date: 20230224
  Transmission Date: 20230417
  Serious: Yes (Life-Threatening, Other)
  Sender: FDA-Public Use
  Company Number: US-002147023-NVSC2023US016519

PATIENT
  Sex: Female

DRUGS (8)
  1. XIIDRA [Suspect]
     Active Substance: LIFITEGRAST
     Indication: Dry eye
     Dosage: 50 MILLIGRAM PER MILLILITRE, BID
     Route: 047
  2. XIIDRA [Suspect]
     Active Substance: LIFITEGRAST
     Dosage: 1 DRP, BID
     Route: 065
  3. ALLEGRA [Suspect]
     Active Substance: FEXOFENADINE HYDROCHLORIDE
     Indication: Product used for unknown indication
     Dosage: UNK, QD (PILL)
     Route: 065
  4. PREDNISONE [Concomitant]
     Active Substance: PREDNISONE
     Indication: Product used for unknown indication
     Dosage: 3.5 MG, QD (PILLS)
     Route: 065
  5. METOPROLOL [Concomitant]
     Active Substance: METOPROLOL
     Indication: Product used for unknown indication
     Dosage: UNK, QD (PILL)
     Route: 065
  6. CLOPIDOGREL [Concomitant]
     Active Substance: CLOPIDOGREL BISULFATE
     Indication: Product used for unknown indication
     Dosage: UNK, QD (PILL)
     Route: 065
  7. ROSUVASTATIN [Concomitant]
     Active Substance: ROSUVASTATIN
     Indication: Product used for unknown indication
     Dosage: UNK, QD (PILL)
     Route: 065
  8. HYDROCHLOROTHIAZIDE\TRIAMTERENE [Concomitant]
     Active Substance: HYDROCHLOROTHIAZIDE\TRIAMTERENE
     Indication: Product used for unknown indication
     Dosage: UNK, TIW (PILL)
     Route: 065

REACTIONS (6)
  - Pharyngeal swelling [Unknown]
  - Angioedema [Unknown]
  - Swollen tongue [Unknown]
  - Lip swelling [Unknown]
  - Palatal swelling [Unknown]
  - Dysphagia [Unknown]
